FAERS Safety Report 5682785-X (Version None)
Quarter: 2008Q1

REPORT INFORMATION
  Report Type: 
  Country: None (occurrence: None)
  Receive Date: 20080327
  Receipt Date: 20080318
  Transmission Date: 20080703
  Serious: Yes (Other)
  Sender: FDA-Public Use
  Company Number: BR-ROCHE-555044

PATIENT
  Age: 31 Year
  Sex: Male
  Weight: 65 kg

DRUGS (5)
  1. RIVOTRIL [Suspect]
     Indication: CONVULSION PROPHYLAXIS
     Route: 048
     Dates: start: 19900101
  2. RIVOTRIL [Suspect]
     Route: 048
  3. RIVOTRIL [Suspect]
     Route: 048
     Dates: start: 20080301
  4. PHENOBARBITAL TAB [Concomitant]
     Indication: CONVULSION PROPHYLAXIS
  5. VALPROIC ACID [Concomitant]
     Indication: CONVULSION PROPHYLAXIS

REACTIONS (6)
  - ANTISOCIAL BEHAVIOUR [None]
  - DEPRESSION [None]
  - DIZZINESS [None]
  - HYPOAESTHESIA [None]
  - IRRITABILITY [None]
  - WITHDRAWAL SYNDROME [None]
